FAERS Safety Report 7867515-5 (Version None)
Quarter: 2011Q4

REPORT INFORMATION
  Report Type: 
  Country: None (occurrence: None)
  Receive Date: 20111028
  Receipt Date: 20111014
  Transmission Date: 20120403
  Serious: Yes (Hospitalization, Other)
  Sender: FDA-Public Use
  Company Number: PHHY2011DE91308

PATIENT
  Sex: Female
  Weight: 88 kg

DRUGS (11)
  1. METOPROLOL TARTRATE [Concomitant]
     Indication: HYPERTENSION
     Dosage: 71 MG, PER DAY
     Route: 048
  2. FUROSEMIDE [Concomitant]
     Indication: HYPERTENSION
     Dosage: 375 MG, PER DAY
     Route: 048
     Dates: start: 20060602
  3. NEPRESOL [Concomitant]
     Indication: HYPERTENSION
     Dosage: 4 DF, QD
     Route: 048
     Dates: start: 20060602
  4. MARCUMAR [Concomitant]
     Indication: ATRIAL FIBRILLATION
     Dosage: ACCORDING TO INR
     Route: 048
     Dates: start: 20060602
  5. RASILEZ [Suspect]
     Indication: HYPERTENSION
     Dosage: 300 MG, PER DAY
     Route: 048
     Dates: start: 20090811
  6. SIMVASTATIN [Concomitant]
     Indication: HYPERLIPIDAEMIA
     Dosage: 40 MG, PER DAY
     Route: 048
     Dates: start: 20090811
  7. FOSINOPRIL SODIUM [Concomitant]
     Indication: HYPERTENSION
     Dosage: 10 MG, PER DAY
     Route: 048
     Dates: start: 20060602
  8. AMLODIPINE [Concomitant]
     Indication: HYPERTENSION
     Dosage: 5 MG, PER DAY
     Route: 048
  9. ACTRAPHANE [Concomitant]
     Indication: DIABETES MELLITUS
     Dosage: 30 IU, PER DAY
     Route: 058
     Dates: start: 20061020
  10. PROTAPHAN [Concomitant]
     Indication: DIABETES MELLITUS
     Dosage: 14 IU, PER DAY
     Route: 058
     Dates: start: 20070206
  11. ARIMIDEX [Concomitant]
     Indication: BREAST CANCER
     Dosage: 1 MG, PER DAY
     Route: 048
     Dates: start: 20090811

REACTIONS (9)
  - HAEMOGLOBIN DECREASED [None]
  - LEFT VENTRICULAR FAILURE [None]
  - HYPERPARATHYROIDISM SECONDARY [None]
  - GLYCOSYLATED HAEMOGLOBIN INCREASED [None]
  - PAIN [None]
  - HYPERTENSION [None]
  - BLOOD CREATININE INCREASED [None]
  - URINE ALBUMIN/CREATININE RATIO INCREASED [None]
  - HYPERURICAEMIA [None]
